FAERS Safety Report 10029580 (Version 1)
Quarter: 2014Q1

REPORT INFORMATION
  Report Type: Spontaneous
  Country: US (occurrence: None)
  Receive Date: 20140320
  Receipt Date: 20140320
  Transmission Date: 20141002
  Serious: Yes (Other)
  Sender: FDA-Public Use
  Company Number: None

PATIENT
  Age: 66 Year
  Sex: Male
  Weight: 54.43 kg

DRUGS (1)
  1. BENICAR 20 MG DAIICHI SANKYO [Suspect]
     Dosage: 1  ONCE DAILY

REACTIONS (3)
  - Swelling face [None]
  - Eye swelling [None]
  - Dizziness [None]
